FAERS Safety Report 9011660 (Version 1)
Quarter: 2013Q1

REPORT INFORMATION
  Report Type: Spontaneous
  Country: US (occurrence: US)
  Receive Date: 20130108
  Receipt Date: 20130108
  Transmission Date: 20140127
  Serious: No
  Sender: FDA-Public Use
  Company Number: US-B.I. PHARMACEUTICALS,INC./RIDGEFIELD-2012-BI-03818BP

PATIENT
  Sex: Male

DRUGS (1)
  1. ZANTAC (RANITIDINE HYDROCHLORIDE) [Suspect]
     Indication: DYSPEPSIA
     Dosage: 150 MG
     Route: 048
     Dates: start: 201211

REACTIONS (3)
  - Flatulence [Recovered/Resolved]
  - Gastrooesophageal reflux disease [Recovered/Resolved]
  - Throat irritation [Recovered/Resolved]
